FAERS Safety Report 17293298 (Version 1)
Quarter: 2020Q1

REPORT INFORMATION
  Report Type: Spontaneous
  Country: US (occurrence: US)
  Receive Date: 20200120
  Receipt Date: 20200120
  Transmission Date: 20200409
  Serious: Yes (Other)
  Sender: FDA-Public Use
  Company Number: None

PATIENT
  Age: 5 Year
  Sex: Male
  Weight: 23.85 kg

DRUGS (1)
  1. TAMIFLU [Suspect]
     Active Substance: OSELTAMIVIR PHOSPHATE
     Indication: INFLUENZA
     Dosage: ?          QUANTITY:10 10 ML;?
     Route: 048
     Dates: start: 20200117, end: 20200119

REACTIONS (3)
  - Crying [None]
  - Fear [None]
  - Confusional state [None]

NARRATIVE: CASE EVENT DATE: 20200119
